FAERS Safety Report 16688330 (Version 2)
Quarter: 2019Q3

REPORT INFORMATION
  Report Type: Spontaneous
  Country: US (occurrence: US)
  Receive Date: 20190809
  Receipt Date: 20190923
  Transmission Date: 20191004
  Serious: Yes (Other)
  Sender: FDA-Public Use
  Company Number: US-PFIZER INC-2019340048

PATIENT
  Age: 26 Year
  Sex: Male

DRUGS (2)
  1. BICILLIN L-A [Suspect]
     Active Substance: PENICILLIN G BENZATHINE
     Indication: SYPHILIS
     Dosage: 2.4 MILLION UNITS PER 4 ML INJECTED INTRAMUSCULARLY, ONE TIME DOSE RIGHT OUTER GLUTEAL
     Route: 030
     Dates: start: 20190729
  2. BICILLIN L-A [Suspect]
     Active Substance: PENICILLIN G BENZATHINE
     Dosage: 2.4 MILLION UNITS PER 4 ML INJECTED INTRAMUSCULARLY, ONE TIME DOSE RIGHT OUTER GLUTEAL
     Route: 030
     Dates: start: 201908, end: 201908

REACTIONS (13)
  - Cyanosis [Unknown]
  - Malaise [Unknown]
  - Pruritus [Unknown]
  - Paraesthesia [Recovered/Resolved]
  - Dyspnoea [Recovered/Resolved]
  - Gait disturbance [Unknown]
  - Panic attack [Recovered/Resolved]
  - Hyperventilation [Recovered/Resolved]
  - Nephrolithiasis [Not Recovered/Not Resolved]
  - Back pain [Unknown]
  - Muscle spasms [Recovered/Resolved]
  - Paraesthesia [Unknown]
  - Anaphylactic reaction [Recovered/Resolved]

NARRATIVE: CASE EVENT DATE: 20190729
